FAERS Safety Report 6818318-1 (Version None)
Quarter: 2010Q3

REPORT INFORMATION
  Report Type: 
  Country: None (occurrence: None)
  Receive Date: 20100706
  Receipt Date: 20070910
  Transmission Date: 20110219
  Serious: No
  Sender: FDA-Public Use
  Company Number: US-PFIZER INC-2007075363

PATIENT
  Sex: Female
  Weight: 54.43 kg

DRUGS (1)
  1. AZITHROMYCIN [Suspect]
     Indication: EAR INFECTION
     Dates: start: 20070910

REACTIONS (1)
  - ABDOMINAL PAIN UPPER [None]
